FAERS Safety Report 5811988-6 (Version None)
Quarter: 2008Q3

REPORT INFORMATION
  Report Type: 
  Country: None (occurrence: None)
  Receive Date: 20080716
  Receipt Date: 20080702
  Transmission Date: 20090109
  Serious: Yes (Hospitalization)
  Sender: FDA-Public Use
  Company Number: US-WATSON-2008-03999

PATIENT
  Sex: Female
  Weight: 77.551 kg

DRUGS (10)
  1. HYDROXYZINE PAMOATE (WATSON LABORATORIES) [Suspect]
     Indication: OSTEOARTHRITIS
     Dosage: 50 MG, TID
     Route: 048
     Dates: start: 20080528, end: 20080624
  2. HYDROXYZINE PAMOATE (WATSON LABORATORIES) [Suspect]
     Indication: FIBROMYALGIA
     Dosage: 50 MG, TID
     Route: 048
     Dates: start: 20070104, end: 20080527
  3. REGLAN [Suspect]
     Indication: VOMITING
     Dosage: 10 MG 1/2 HR AC TID
     Route: 048
     Dates: start: 20080623
  4. REGLAN [Suspect]
     Dosage: 5 MG 1/2 HR AC, TID
     Route: 048
     Dates: start: 20080605, end: 20080622
  5. VICODIN [Concomitant]
     Indication: OSTEOARTHRITIS
     Dosage: 10/660 (1 TABLET), TID
     Route: 048
     Dates: start: 19930101, end: 20080624
  6. VICODIN [Concomitant]
     Dosage: 10/660 (1 TABLET), TID
     Route: 048
     Dates: start: 20080627
  7. SOMA [Concomitant]
     Indication: MUSCLE SPASMS
     Dosage: 350 MG, QID
     Route: 048
     Dates: start: 19930101, end: 20080624
  8. SOMA [Concomitant]
     Dosage: 350 MG, QID
     Route: 048
     Dates: start: 20080627
  9. VALIUM [Concomitant]
     Indication: MUSCLE SPASMS
     Dosage: 10 MG, BID
     Route: 048
     Dates: start: 20060101
  10. ACIPHEX [Concomitant]
     Indication: BARRETT'S OESOPHAGUS
     Dosage: 20 MG, DAILY
     Route: 048
     Dates: start: 20080108

REACTIONS (14)
  - AMNESIA [None]
  - ASTHENIA [None]
  - ATAXIA [None]
  - CONFUSIONAL STATE [None]
  - CONSCIOUSNESS FLUCTUATING [None]
  - CONVULSION [None]
  - DYSARTHRIA [None]
  - DYSTONIA [None]
  - ENCEPHALOPATHY [None]
  - FEELING COLD [None]
  - LETHARGY [None]
  - MEMORY IMPAIRMENT [None]
  - SHOCK [None]
  - VERTIGO [None]
